FAERS Safety Report 25448955 (Version 1)
Quarter: 2025Q2

REPORT INFORMATION
  Report Type: Spontaneous
  Country: SG (occurrence: SG)
  Receive Date: 20250618
  Receipt Date: 20250618
  Transmission Date: 20250716
  Serious: Yes (Other)
  Sender: Kenvue
  Company Number: SG-KENVUE-20250605428

PATIENT

DRUGS (3)
  1. ACETAMINOPHEN [Suspect]
     Active Substance: ACETAMINOPHEN
     Indication: Product used for unknown indication
     Route: 065
  2. BUTYLSCOPOLAMINE BROMIDE [Suspect]
     Active Substance: BUTYLSCOPOLAMINE BROMIDE
     Indication: Product used for unknown indication
     Route: 065
  3. CHLORZOXAZONE [Suspect]
     Active Substance: CHLORZOXAZONE
     Indication: Product used for unknown indication
     Route: 065

REACTIONS (2)
  - Syncope [Unknown]
  - Hypotension [Unknown]

NARRATIVE: CASE EVENT DATE: 20010101
